FAERS Safety Report 6129431-9 (Version None)
Quarter: 2009Q1

REPORT INFORMATION
  Report Type: 
  Country: None (occurrence: None)
  Receive Date: 20090323
  Receipt Date: 20090323
  Transmission Date: 20090719
  Serious: Yes (Other)
  Sender: FDA-Public Use
  Company Number: None

PATIENT
  Age: 22 Year
  Sex: Male
  Weight: 79.3795 kg

DRUGS (1)
  1. ACCUTANE [Suspect]
     Indication: ACNE
     Dosage: 40MG TWICE A DAY PO
     Route: 048
     Dates: start: 20051010, end: 20060310

REACTIONS (7)
  - ARTHRALGIA [None]
  - BACK PAIN [None]
  - FALL [None]
  - INTERVERTEBRAL DISC PROTRUSION [None]
  - INTRACRANIAL PRESSURE INCREASED [None]
  - LIGAMENT DISORDER [None]
  - PAIN [None]
